FAERS Safety Report 4434685-0 (Version None)
Quarter: 2004Q3

REPORT INFORMATION
  Report Type: 
  Country: None (occurrence: None)
  Receive Date: 20040730
  Receipt Date: 20030613
  Transmission Date: 20050211
  Serious: Yes (Disabling)
  Sender: FDA-Public Use
  Company Number: 2003-06-1655

PATIENT
  Age: 33 Year
  Sex: Male
  Weight: 86.1834 kg

DRUGS (6)
  1. INTRON A [Suspect]
     Indication: HEPATITIS C
     Dosage: 3 MU TIW SUBCUTANEOUS
     Route: 058
     Dates: start: 20011203, end: 20020806
  2. REBETOL [Suspect]
     Indication: HEPATITIS C
     Dosage: 1200 MG QD ORAL
     Route: 048
     Dates: start: 20011203, end: 20020806
  3. LEVOTHYROXINE SODIUM [Concomitant]
  4. HYPOTHYROID [Concomitant]
  5. VITAMIN E [Concomitant]
  6. MULTI-VITAMINS [Concomitant]

REACTIONS (7)
  - ARTHRALGIA [None]
  - ARTHRITIS [None]
  - ARTHROPATHY [None]
  - DEPRESSION [None]
  - DRUG INEFFECTIVE [None]
  - HERPES SIMPLEX [None]
  - PAROPHTHALMIA [None]
